FAERS Safety Report 8931878 (Version 1)
Quarter: 2012Q4

REPORT INFORMATION
  Report Type: 
  Country: CA (occurrence: CA)
  Receive Date: 20121128
  Receipt Date: 20121128
  Transmission Date: 20130627
  Serious: Yes (Other)
  Sender: FDA-Public Use
  Company Number: CA-JNJFOC-20121113595

PATIENT

DRUGS (1)
  1. LISTERINE ANTISEPTIC MOUTHWASH [Suspect]
     Indication: INTENTIONAL DRUG MISUSE
     Route: 048

REACTIONS (3)
  - Drug dependence [Unknown]
  - Intentional drug misuse [Unknown]
  - Urinary incontinence [Unknown]
